FAERS Safety Report 4623490-8 (Version None)
Quarter: 2005Q1

REPORT INFORMATION
  Report Type: 
  Country: None (occurrence: None)
  Receive Date: 20050330
  Receipt Date: 20040901
  Transmission Date: 20050727
  Serious: Yes (Other)
  Sender: FDA-Public Use
  Company Number: 213328

PATIENT
  Age: 52 Year
  Sex: Male

DRUGS (2)
  1. AVASTIN [Suspect]
     Indication: COLORECTAL CANCER METASTATIC
     Dosage: 7.5 MG/KG, INTRAVENOUS
     Route: 042
     Dates: start: 20040815, end: 20040815
  2. XELODA [Concomitant]

REACTIONS (3)
  - DERMATITIS EXFOLIATIVE [None]
  - RASH ERYTHEMATOUS [None]
  - THROMBOCYTOPENIA [None]
